FAERS Safety Report 8058955-2 (Version None)
Quarter: 2012Q1

REPORT INFORMATION
  Report Type: 
  Country: None (occurrence: None)
  Receive Date: 20120112
  Receipt Date: 20111223
  Transmission Date: 20120608
  Serious: Yes (Hospitalization)
  Sender: FDA-Public Use
  Company Number: 20110892

PATIENT
  Age: 24 Year
  Sex: Female

DRUGS (1)
  1. VENOFER [Suspect]
     Indication: ANAEMIA
     Dosage: 100 MG, INTRAVENOUS
     Route: 042
     Dates: start: 20110927

REACTIONS (2)
  - INFUSION SITE DISCOLOURATION [None]
  - INFUSION SITE EXTRAVASATION [None]
